FAERS Safety Report 24165632 (Version 2)
Quarter: 2024Q3

REPORT INFORMATION
  Report Type: Spontaneous
  Country: US (occurrence: US)
  Receive Date: 20240802
  Receipt Date: 20240806
  Transmission Date: 20241017
  Serious: No
  Sender: TEVA
  Company Number: US-TEVA-VS-3225871

PATIENT
  Age: 57 Year
  Sex: Female

DRUGS (1)
  1. AUSTEDO XR [Suspect]
     Active Substance: DEUTETRABENAZINE
     Indication: Tardive dyskinesia
     Dosage: 12 MG EVERY NIGHT AT BEDTIME
     Route: 065

REACTIONS (2)
  - Constipation [Unknown]
  - Dry mouth [Unknown]
